FAERS Safety Report 21026902 (Version 1)
Quarter: 2022Q2

REPORT INFORMATION
  Report Type: Spontaneous
  Country: US (occurrence: US)
  Receive Date: 20220630
  Receipt Date: 20220630
  Transmission Date: 20220721
  Serious: No
  Sender: FDA-Public Use
  Company Number: US-BRISTOL-MYERS SQUIBB COMPANY-2022-064680

PATIENT
  Age: 75 Year
  Sex: Male

DRUGS (1)
  1. REVLIMID [Suspect]
     Active Substance: LENALIDOMIDE
     Indication: Plasma cell myeloma
     Dosage: 1 CAPSULE DAILY FOR 21 DAYS , OFF 7 DAYS
     Route: 048
     Dates: start: 2021

REACTIONS (8)
  - Micturition urgency [Unknown]
  - Incontinence [Unknown]
  - Muscle spasms [Unknown]
  - Dizziness [Unknown]
  - Gait disturbance [Unknown]
  - Weight decreased [Unknown]
  - Appetite disorder [Unknown]
  - Jaw clicking [Unknown]
